FAERS Safety Report 24057204 (Version 1)
Quarter: 2024Q3

REPORT INFORMATION
  Report Type: Report from Study
  Country: US (occurrence: US)
  Receive Date: 20240706
  Receipt Date: 20240706
  Transmission Date: 20241016
  Serious: Yes (Other)
  Sender: ABBVIE
  Company Number: US-ABBVIE-5826605

PATIENT
  Age: 66 Year
  Sex: Female

DRUGS (1)
  1. HUMIRA [Suspect]
     Active Substance: ADALIMUMAB
     Indication: Rheumatoid arthritis
     Dosage: FORM STRENGTH: 40 MILLIGRAM; CITRATE FREE
     Route: 058
     Dates: start: 20200620, end: 2024

REACTIONS (2)
  - Splenic injury [Recovering/Resolving]
  - Procedural intestinal perforation [Recovering/Resolving]

NARRATIVE: CASE EVENT DATE: 20240601
